FAERS Safety Report 7333069-5 (Version None)
Quarter: 2011Q1

REPORT INFORMATION
  Report Type: 
  Country: None (occurrence: None)
  Receive Date: 20110304
  Receipt Date: 20110218
  Transmission Date: 20110831
  Serious: Yes (Other)
  Sender: FDA-Public Use
  Company Number: AU-CELGENEUS-008-21880-11021301

PATIENT
  Sex: Female

DRUGS (1)
  1. REVLIMID [Suspect]
     Route: 048
     Dates: start: 20080417, end: 20090324

REACTIONS (1)
  - OVARIAN CANCER [None]
